FAERS Safety Report 20553392 (Version 8)
Quarter: 2023Q1

REPORT INFORMATION
  Report Type: Report from Study
  Country: US (occurrence: None)
  Receive Date: 20220304
  Receipt Date: 20230106
  Transmission Date: 20230418
  Serious: Yes (Other)
  Sender: FDA-Public Use
  Company Number: US-ROCHE-3035136

PATIENT
  Age: 68 Year
  Sex: Male
  Weight: 88.8 kg

DRUGS (17)
  1. ATEZOLIZUMAB [Suspect]
     Active Substance: ATEZOLIZUMAB
     Indication: Skin cancer
     Route: 041
     Dates: start: 20220208, end: 20220208
  2. ATEZOLIZUMAB [Suspect]
     Active Substance: ATEZOLIZUMAB
     Route: 041
     Dates: start: 20220322
  3. ATEZOLIZUMAB [Suspect]
     Active Substance: ATEZOLIZUMAB
     Route: 041
     Dates: start: 20220303
  4. EFINEPTAKIN ALFA [Suspect]
     Active Substance: EFINEPTAKIN ALFA
     Indication: Skin cancer
     Route: 030
     Dates: start: 20220208, end: 20220208
  5. EFINEPTAKIN ALFA [Suspect]
     Active Substance: EFINEPTAKIN ALFA
     Route: 030
     Dates: start: 20220322
  6. EFINEPTAKIN ALFA [Suspect]
     Active Substance: EFINEPTAKIN ALFA
     Route: 030
     Dates: start: 20220322
  7. CHOLECALCIFEROL [Concomitant]
     Active Substance: CHOLECALCIFEROL
     Dosage: 1000 UNIT
     Route: 048
     Dates: start: 20210927
  8. CHOLECALCIFEROL [Concomitant]
     Active Substance: CHOLECALCIFEROL
     Dates: start: 20210915
  9. DESONIDE [Concomitant]
     Active Substance: DESONIDE
     Dosage: 1 APPLICATION
     Route: 061
     Dates: start: 20210927
  10. FLUDROCORTISONE [Concomitant]
     Active Substance: FLUDROCORTISONE
     Route: 048
     Dates: start: 20210927
  11. HYDROCORTISONE [Concomitant]
     Active Substance: HYDROCORTISONE
     Indication: Malignant melanoma
     Dosage: 2.5 PERCENT
     Route: 048
     Dates: start: 20211123
  12. HYDROCORTISONE [Concomitant]
     Active Substance: HYDROCORTISONE
     Indication: Dandruff
     Dosage: 2.5 PERCENT, 21 APPLICATION
     Route: 061
     Dates: start: 20220322
  13. KETOCONAZOLE [Concomitant]
     Active Substance: KETOCONAZOLE
     Indication: Seborrhoeic dermatitis
     Dosage: 1 APPLICATION TWICE PER WEEK TOPICALLY
     Dates: start: 20210927
  14. LABETALOL [Concomitant]
     Active Substance: LABETALOL\LABETALOL HYDROCHLORIDE
     Indication: Atrial fibrillation
     Dates: start: 20220102
  15. TRIAMCINOLONE ACETONIDE [Concomitant]
     Active Substance: TRIAMCINOLONE ACETONIDE
     Dosage: 0.1 PERCENT, 1 APPLICATION
     Route: 061
     Dates: start: 20211018
  16. AMLODIPINE [Concomitant]
     Active Substance: AMLODIPINE BESYLATE
     Indication: Atrial fibrillation
     Route: 048
     Dates: start: 20211123
  17. BETAMETHASONE [Concomitant]
     Active Substance: BETAMETHASONE
     Indication: Dermatitis acneiform
     Dosage: 1 APPLICATION
     Route: 061
     Dates: start: 20210914

REACTIONS (1)
  - Influenza like illness [Recovered/Resolved]

NARRATIVE: CASE EVENT DATE: 20220210
